FAERS Safety Report 9527181 (Version 2)
Quarter: 2013Q4

REPORT INFORMATION
  Report Type: Spontaneous
  Country: US (occurrence: US)
  Receive Date: 20130916
  Receipt Date: 20131025
  Transmission Date: 20140711
  Serious: No
  Sender: FDA-Public Use
  Company Number: US-009507513-1309USA005064

PATIENT
  Sex: Female
  Weight: 62.59 kg

DRUGS (2)
  1. SYLATRON [Suspect]
     Indication: MALIGNANT MELANOMA
     Dosage: 130 MICROGRAM, QW
     Route: 058
     Dates: start: 20130419, end: 20130902
  2. PRILOSEC [Concomitant]
     Route: 048

REACTIONS (6)
  - Alopecia [Not Recovered/Not Resolved]
  - Weight decreased [Recovering/Resolving]
  - Fatigue [Recovering/Resolving]
  - Dysgeusia [Not Recovered/Not Resolved]
  - Malaise [Recovering/Resolving]
  - Quality of life decreased [Recovering/Resolving]
